FAERS Safety Report 9863043 (Version 2)
Quarter: 2014Q1

REPORT INFORMATION
  Report Type: Report from Study
  Country: TW (occurrence: TW)
  Receive Date: 20140203
  Receipt Date: 20140321
  Transmission Date: 20141002
  Serious: Yes (Other)
  Sender: FDA-Public Use
  Company Number: PHHY2014TW012587

PATIENT
  Age: 59 Year
  Sex: Male
  Weight: 79.5 kg

DRUGS (4)
  1. AMN107 [Suspect]
     Indication: CHRONIC MYELOID LEUKAEMIA
     Dosage: 600 MG, UNK
     Dates: start: 20110817, end: 20110906
  2. AMN107 [Suspect]
     Dosage: 400 MG, UNK
     Dates: start: 20110907, end: 20120103
  3. AMN107 [Suspect]
     Dosage: 800 MG, UNK
     Dates: start: 20120104, end: 20120214
  4. AMN107 [Suspect]
     Dosage: 400 MG, UNK
     Dates: start: 20120215

REACTIONS (5)
  - Angina pectoris [Recovering/Resolving]
  - Palpitations [Recovering/Resolving]
  - Sinus tachycardia [Recovering/Resolving]
  - Hyperhidrosis [Unknown]
  - Chest discomfort [Unknown]
